FAERS Safety Report 11784550 (Version 1)
Quarter: 2015Q4

REPORT INFORMATION
  Report Type: Spontaneous
  Country: US (occurrence: US)
  Receive Date: 20151130
  Receipt Date: 20151130
  Transmission Date: 20160305
  Serious: Yes (Hospitalization, Other)
  Sender: FDA-Public Use
  Company Number: US-ZYDUS-009547

PATIENT
  Age: 79 Year
  Sex: Male

DRUGS (1)
  1. AZATHIOPRINE. [Suspect]
     Active Substance: AZATHIOPRINE
     Indication: PRODUCT USED FOR UNKNOWN INDICATION

REACTIONS (10)
  - Abdominal pain [Unknown]
  - Drug hypersensitivity [Unknown]
  - Renal injury [Unknown]
  - Acute febrile neutrophilic dermatosis [Unknown]
  - Haemoglobin decreased [None]
  - Metabolic acidosis [Unknown]
  - Thrombocytopenia [Unknown]
  - Metabolic acidosis [None]
  - Leukocytosis [Unknown]
  - Respiratory failure [Unknown]
